FAERS Safety Report 12170127 (Version 1)
Quarter: 2016Q1

REPORT INFORMATION
  Report Type: Spontaneous
  Country: US (occurrence: US)
  Receive Date: 20160311
  Receipt Date: 20160311
  Transmission Date: 20160526
  Serious: No
  Sender: FDA-Public Use
  Company Number: US-009507513-1602USA011367

PATIENT
  Sex: Female
  Weight: 99.77 kg

DRUGS (1)
  1. IMPLANON [Suspect]
     Active Substance: ETONOGESTREL
     Dosage: 1 DF, PLACED 8 YEARS AGO
     Route: 059
     Dates: start: 2008

REACTIONS (4)
  - Complication associated with device [Not Recovered/Not Resolved]
  - Weight increased [Unknown]
  - Incorrect drug administration duration [Not Recovered/Not Resolved]
  - Device dislocation [Not Recovered/Not Resolved]

NARRATIVE: CASE EVENT DATE: 2011
